FAERS Safety Report 16217098 (Version 1)
Quarter: 2019Q2

REPORT INFORMATION
  Report Type: Spontaneous
  Country: DE (occurrence: DE)
  Receive Date: 20190419
  Receipt Date: 20190419
  Transmission Date: 20190711
  Serious: Yes (Death)
  Sender: FDA-Public Use
  Company Number: DE-ASTRAZENECA-2019SE59431

PATIENT
  Age: 88 Year
  Sex: Male

DRUGS (1)
  1. EKLIRA GENUAIR [Suspect]
     Active Substance: ACLIDINIUM BROMIDE
     Dosage: UNKNOWN DOSE AND FREQUENCY
     Route: 055

REACTIONS (3)
  - Device malfunction [Unknown]
  - Death [Fatal]
  - Product dose omission [Fatal]
